FAERS Safety Report 19643988 (Version 1)
Quarter: 2021Q3

REPORT INFORMATION
  Report Type: Report from Study
  Country: None (occurrence: CO)
  Receive Date: 20210731
  Receipt Date: 20210731
  Transmission Date: 20211014
  Serious: Yes (Disabling, Other)
  Sender: FDA-Public Use
  Company Number: CO-ABBVIE-21K-036-4019253-00

PATIENT
  Age: 55 Year
  Sex: Female
  Weight: 80 kg

DRUGS (3)
  1. CORONAVAC [Suspect]
     Active Substance: INVESTIGATIONAL PRODUCT
     Indication: COVID-19 IMMUNISATION
     Dosage: SINOVAC
     Route: 030
     Dates: start: 20210714, end: 20210714
  2. HUMIRA [Suspect]
     Active Substance: ADALIMUMAB
     Indication: COLITIS ULCERATIVE
     Route: 058
     Dates: end: 20210707
  3. HUMIRA [Suspect]
     Active Substance: ADALIMUMAB
     Indication: COLITIS ULCERATIVE
     Route: 058
     Dates: start: 20120215

REACTIONS (17)
  - Chest discomfort [Recovering/Resolving]
  - Asthenia [Recovering/Resolving]
  - Bone pain [Recovering/Resolving]
  - Headache [Recovered/Resolved]
  - Sleep disorder [Recovering/Resolving]
  - Chest pain [Recovering/Resolving]
  - Anxiety [Recovered/Resolved]
  - Diarrhoea [Recovering/Resolving]
  - Nausea [Recovering/Resolving]
  - Tremor [Recovering/Resolving]
  - Hyperhidrosis [Recovering/Resolving]
  - Pain in extremity [Recovering/Resolving]
  - Paraesthesia [Recovering/Resolving]
  - Mental disorder [Recovering/Resolving]
  - Panic attack [Recovered/Resolved]
  - Discomfort [Recovering/Resolving]
  - Weight increased [Recovering/Resolving]

NARRATIVE: CASE EVENT DATE: 2018
